FAERS Safety Report 15719955 (Version 1)
Quarter: 2018Q4

REPORT INFORMATION
  Report Type: Spontaneous
  Country: US (occurrence: US)
  Receive Date: 20181213
  Receipt Date: 20181213
  Transmission Date: 20190205
  Serious: Yes (Hospitalization, Other)
  Sender: FDA-Public Use
  Company Number: US-PFIZER INC-2018511765

PATIENT
  Age: 66 Year
  Sex: Male
  Weight: 111.13 kg

DRUGS (3)
  1. LYRICA [Suspect]
     Active Substance: PREGABALIN
     Indication: INTERVERTEBRAL DISC DEGENERATION
     Dosage: 50 MG, UNK
  2. LYRICA [Suspect]
     Active Substance: PREGABALIN
     Dosage: 150 MG, TWICE DAILY
     Route: 048
     Dates: start: 201810, end: 201811
  3. FUROSEMIDE. [Concomitant]
     Active Substance: FUROSEMIDE
     Dosage: UNK, 2X/DAY [TWICE DAILY]

REACTIONS (21)
  - Drug ineffective [Unknown]
  - Heart rate increased [Unknown]
  - Agitation [Unknown]
  - Pruritus [Not Recovered/Not Resolved]
  - Feeling of body temperature change [Unknown]
  - Mental status changes [Unknown]
  - Weight increased [Unknown]
  - Dysuria [Recovered/Resolved]
  - Dry mouth [Recovering/Resolving]
  - Peripheral swelling [Not Recovered/Not Resolved]
  - Dizziness [Unknown]
  - Myalgia [Unknown]
  - Erectile dysfunction [Not Recovered/Not Resolved]
  - Delirium [Unknown]
  - Constipation [Recovered/Resolved]
  - Dysphagia [Unknown]
  - Memory impairment [Unknown]
  - Confusional state [Unknown]
  - Depression [Not Recovered/Not Resolved]
  - Abnormal dreams [Unknown]
  - Disturbance in attention [Unknown]

NARRATIVE: CASE EVENT DATE: 201810
